FAERS Safety Report 9707878 (Version 1)
Quarter: 2013Q4

REPORT INFORMATION
  Report Type: Spontaneous
  Country: SK (occurrence: SK)
  Receive Date: 20131125
  Receipt Date: 20131125
  Transmission Date: 20140711
  Serious: Yes (Life-Threatening, Hospitalization)
  Sender: FDA-Public Use
  Company Number: SK-JNJFOC-20131111030

PATIENT
  Sex: Male

DRUGS (3)
  1. XARELTO [Suspect]
     Indication: CEREBROVASCULAR ACCIDENT PROPHYLAXIS
     Route: 048
     Dates: start: 20130821, end: 20130916
  2. XARELTO [Suspect]
     Indication: ATRIAL FIBRILLATION
     Route: 048
     Dates: start: 20130821, end: 20130916
  3. CLOPIDOGREL [Suspect]
     Indication: SUBARACHNOID HAEMORRHAGE
     Route: 048
     Dates: start: 20130821, end: 20130916

REACTIONS (1)
  - Melaena [Recovered/Resolved]
